FAERS Safety Report 20577122 (Version 2)
Quarter: 2022Q2

REPORT INFORMATION
  Report Type: Report from Study
  Country: JP (occurrence: JP)
  Receive Date: 20220310
  Receipt Date: 20220422
  Transmission Date: 20220720
  Serious: Yes (Hospitalization)
  Sender: FDA-Public Use
  Company Number: JP-JNJFOC-20220148302

PATIENT
  Age: 63 Year
  Sex: Male
  Weight: 46 kg

DRUGS (18)
  1. DARATUMUMAB [Suspect]
     Active Substance: DARATUMUMAB
     Indication: Plasma cell myeloma
     Dosage: 1 COURSE
     Route: 058
     Dates: start: 20220118
  2. DARATUMUMAB [Suspect]
     Active Substance: DARATUMUMAB
     Dosage: DOSE UNKNOWN
     Route: 058
     Dates: start: 20220201, end: 20220208
  3. REVLIMID [Suspect]
     Active Substance: LENALIDOMIDE
     Indication: Plasma cell myeloma
     Dosage: 1 COURSE
     Route: 048
     Dates: start: 20220118, end: 20220124
  4. REVLIMID [Suspect]
     Active Substance: LENALIDOMIDE
     Route: 048
     Dates: start: 20220126, end: 20220207
  5. LENADEX [Suspect]
     Active Substance: DEXAMETHASONE ACETATE
     Indication: Plasma cell myeloma
     Dosage: 1 COURSE
     Route: 048
     Dates: start: 20220118, end: 20220125
  6. ACETAMINOPHEN [Concomitant]
     Active Substance: ACETAMINOPHEN
     Indication: Prophylaxis
     Route: 048
     Dates: start: 20220118
  7. CEFEPIME [Concomitant]
     Active Substance: CEFEPIME HYDROCHLORIDE
     Dosage: DOSE UNKNOWN
     Route: 065
     Dates: start: 20220123, end: 20220123
  8. RINGERS SOLUTION [Concomitant]
     Active Substance: CALCIUM CHLORIDE\POTASSIUM CHLORIDE\SODIUM CHLORIDE
     Dosage: DOSE UNKNOWN
     Route: 065
     Dates: start: 20220123, end: 20220124
  9. METHYLPREDNISOLONE [Concomitant]
     Active Substance: METHYLPREDNISOLONE
     Route: 065
     Dates: start: 20220123
  10. MEROPENEM [Concomitant]
     Active Substance: MEROPENEM
     Dosage: DOSE UNKNOWN
     Route: 065
     Dates: start: 20220123, end: 20220125
  11. ALFACALCIDOL [Concomitant]
     Active Substance: ALFACALCIDOL
     Indication: Osteoporosis
     Route: 048
     Dates: start: 20220120
  12. ASPIRIN [Concomitant]
     Active Substance: ASPIRIN
     Indication: Thrombosis prophylaxis
     Route: 048
     Dates: start: 20220120
  13. VONOPRAZAN FUMARATE [Concomitant]
     Active Substance: VONOPRAZAN FUMARATE
     Indication: Prophylaxis against gastrointestinal ulcer
     Route: 048
     Dates: start: 20220120
  14. SULFAMETHOXAZOLE\TRIMETHOPRIM [Concomitant]
     Active Substance: SULFAMETHOXAZOLE\TRIMETHOPRIM
     Indication: Antifungal prophylaxis
     Route: 048
     Dates: start: 20220120
  15. ACYCLOVIR [Concomitant]
     Active Substance: ACYCLOVIR
     Indication: Antiviral prophylaxis
     Route: 048
     Dates: start: 20220120
  16. BEPOTASTINE BESYLATE [Concomitant]
     Active Substance: BEPOTASTINE BESYLATE
     Indication: Prophylaxis
     Route: 048
     Dates: start: 20220118
  17. MONTELUKAST OD [Concomitant]
     Indication: Prophylaxis
     Route: 048
     Dates: start: 20220118
  18. DENOSUMAB [Concomitant]
     Active Substance: DENOSUMAB
     Indication: Osteolysis
     Route: 058
     Dates: start: 20220120

REACTIONS (2)
  - Hypotension [Recovered/Resolved]
  - Sinus node dysfunction [Recovering/Resolving]

NARRATIVE: CASE EVENT DATE: 20220123
